FAERS Safety Report 6736039-0 (Version None)
Quarter: 2010Q2

REPORT INFORMATION
  Report Type: 
  Country: None (occurrence: None)
  Receive Date: 20100521
  Receipt Date: 20100512
  Transmission Date: 20101027
  Serious: Yes (Other)
  Sender: FDA-Public Use
  Company Number: US-BAYER-201015291NA

PATIENT
  Age: 31 Year
  Sex: Female

DRUGS (19)
  1. MAGNEVIST [Suspect]
     Indication: NUCLEAR MAGNETIC RESONANCE IMAGING
  2. OMNISCAN [Suspect]
     Indication: NUCLEAR MAGNETIC RESONANCE IMAGING
     Dates: start: 20030922, end: 20030922
  3. OPTIMARK [Suspect]
     Indication: NUCLEAR MAGNETIC RESONANCE IMAGING
  4. MULTIHANCE [Suspect]
     Indication: NUCLEAR MAGNETIC RESONANCE IMAGING
  5. PROHANCE [Suspect]
     Indication: NUCLEAR MAGNETIC RESONANCE IMAGING
  6. UNSPECIFIED GBCA [Suspect]
     Indication: NUCLEAR MAGNETIC RESONANCE IMAGING BRAIN
     Dates: start: 20030110, end: 20030110
  7. UNSPECIFIED GBCA [Suspect]
     Dates: start: 20070118, end: 20070118
  8. PRAVASTATIN [Concomitant]
     Indication: BLOOD CHOLESTEROL INCREASED
  9. DILANTIN [Concomitant]
     Indication: EPILEPSY
  10. METHADONE [Concomitant]
     Indication: PAIN
  11. ENAXAPARIN [Concomitant]
  12. CLONIDINE [Concomitant]
  13. PROMETHAZINE [Concomitant]
  14. METOPROLOL TARTRATE [Concomitant]
  15. AMLODIPINE [Concomitant]
  16. NORVASC [Concomitant]
     Dosage: 10 MG BID
     Dates: start: 20031209
  17. ACCUPRIL [Concomitant]
     Dosage: 40 MG BID
     Dates: start: 20031209
  18. LABETALOL HCL [Concomitant]
     Dosage: 400 MG TID
  19. PREDNISONE [Concomitant]

REACTIONS (11)
  - ARTHRALGIA [None]
  - ATROPHY [None]
  - GAIT DISTURBANCE [None]
  - JOINT CONTRACTURE [None]
  - JOINT RANGE OF MOTION DECREASED [None]
  - MUSCULOSKELETAL STIFFNESS [None]
  - MYALGIA [None]
  - NEPHROGENIC SYSTEMIC FIBROSIS [None]
  - OEDEMA PERIPHERAL [None]
  - PAIN [None]
  - PAIN IN EXTREMITY [None]
